FAERS Safety Report 6131915-4 (Version None)
Quarter: 2009Q1

REPORT INFORMATION
  Report Type: 
  Country: None (occurrence: None)
  Receive Date: 20090325
  Receipt Date: 20090313
  Transmission Date: 20090719
  Serious: Yes (Life-Threatening, Hospitalization, Disabling, Other)
  Sender: FDA-Public Use
  Company Number: DE-PFIZER INC-2009173922

PATIENT

DRUGS (2)
  1. AMPICILLIN AND SULBACTAM [Suspect]
     Indication: MYOCARDITIS
     Dosage: UNK
     Route: 042
     Dates: start: 20090102, end: 20090102
  2. AMPICILLIN AND SULBACTAM [Suspect]
     Indication: BRONCHITIS

REACTIONS (11)
  - ACUTE HEPATIC FAILURE [None]
  - ACUTE RESPIRATORY FAILURE [None]
  - ANAPHYLACTIC REACTION [None]
  - AUTOIMMUNE THYROIDITIS [None]
  - CARDIOGENIC SHOCK [None]
  - DERMATITIS BULLOUS [None]
  - PANIC ATTACK [None]
  - QUADRIPARESIS [None]
  - RENAL FAILURE ACUTE [None]
  - THYROTOXIC CRISIS [None]
  - VOMITING [None]
